FAERS Safety Report 16151444 (Version 1)
Quarter: 2019Q2

REPORT INFORMATION
  Report Type: Spontaneous
  Country: US (occurrence: US)
  Receive Date: 20190403
  Receipt Date: 20190403
  Transmission Date: 20190711
  Serious: Yes (Life-Threatening, Hospitalization, Other)
  Sender: FDA-Public Use
  Company Number: US-MACLEODS PHARMACEUTICALS US LTD-MAC2019020623

PATIENT

DRUGS (4)
  1. LOSARTAN POTASSIUM/HYDROCHLOROTHIAZIDE [Suspect]
     Active Substance: HYDROCHLOROTHIAZIDE\LOSARTAN POTASSIUM
     Indication: PRODUCT USED FOR UNKNOWN INDICATION
     Dosage: UNK, PILL
     Route: 065
  2. VALSARTAN. [Suspect]
     Active Substance: VALSARTAN
     Indication: PRODUCT USED FOR UNKNOWN INDICATION
     Dosage: UNK, PILL
     Route: 065
  3. VALSARTAN AND HYDROCHLOROTHIAZIDE [Suspect]
     Active Substance: HYDROCHLOROTHIAZIDE\VALSARTAN
     Indication: PRODUCT USED FOR UNKNOWN INDICATION
     Dosage: UNK, PILL
     Route: 065
  4. LOSARTAN POTASSIUM. [Suspect]
     Active Substance: LOSARTAN POTASSIUM
     Indication: PRODUCT USED FOR UNKNOWN INDICATION
     Dosage: UNK, PILL
     Route: 065

REACTIONS (22)
  - Amnesia [Unknown]
  - Chromaturia [Unknown]
  - Headache [Unknown]
  - Blindness [Unknown]
  - Dyspnoea [Unknown]
  - Abdominal pain upper [Unknown]
  - Apparent death [Unknown]
  - Hyperglycaemia [Unknown]
  - Pancreatic injury [Unknown]
  - Coma [Unknown]
  - Rash [Unknown]
  - Vomiting [Unknown]
  - Pyrexia [Unknown]
  - Insomnia [Unknown]
  - Thirst [Unknown]
  - Brain injury [Unknown]
  - Liver injury [Unknown]
  - Heart injury [Unknown]
  - Hallucination [Unknown]
  - Cerebrovascular accident [Unknown]
  - Renal injury [Unknown]
  - Fall [Unknown]
